FAERS Safety Report 15884065 (Version 2)
Quarter: 2019Q2

REPORT INFORMATION
  Report Type: Report from Study
  Country: BR (occurrence: BR)
  Receive Date: 20190129
  Receipt Date: 20190405
  Transmission Date: 20190711
  Serious: Yes (Life-Threatening, Hospitalization, Other)
  Sender: FDA-Public Use
  Company Number: PHHY2019BR018662

PATIENT
  Age: 88 Year
  Sex: Male
  Weight: 67 kg

DRUGS (3)
  1. ACLASTA [Suspect]
     Active Substance: ZOLEDRONIC ACID
     Indication: OSTEOPOROSIS
     Dosage: 1 DF, Q12MO
     Route: 042
     Dates: start: 20180313, end: 20180313
  2. CALCIUM [Suspect]
     Active Substance: CALCIUM
     Indication: PRODUCT USED FOR UNKNOWN INDICATION
     Route: 065
  3. VITAMIN B12 [Concomitant]
     Active Substance: CYANOCOBALAMIN
     Indication: PRODUCT USED FOR UNKNOWN INDICATION
     Route: 065

REACTIONS (18)
  - Ischaemic stroke [Not Recovered/Not Resolved]
  - Asphyxia [Recovering/Resolving]
  - Pleurisy [Unknown]
  - Asthenia [Not Recovered/Not Resolved]
  - Cardiac arrest [Unknown]
  - Vertigo [Not Recovered/Not Resolved]
  - Blood potassium increased [Not Recovered/Not Resolved]
  - Cardiomegaly [Unknown]
  - Malabsorption [Unknown]
  - Syncope [Unknown]
  - Nephrolithiasis [Recovered/Resolved]
  - Fluid retention [Unknown]
  - Cardiac failure [Not Recovered/Not Resolved]
  - Pneumonia [Unknown]
  - Vein rupture [Unknown]
  - Heart rate decreased [Not Recovered/Not Resolved]
  - Pulmonary oedema [Unknown]
  - Weight decreased [Unknown]

NARRATIVE: CASE EVENT DATE: 2018
